FAERS Safety Report 7780507-X (Version None)
Quarter: 2011Q3

REPORT INFORMATION
  Report Type: 
  Country: None (occurrence: None)
  Receive Date: 20110927
  Receipt Date: 20110922
  Transmission Date: 20111222
  Serious: No
  Sender: FDA-Public Use
  Company Number: US-BAYER-2011-084949

PATIENT
  Age: 39 Year
  Sex: Female

DRUGS (1)
  1. MIRENA [Suspect]
     Indication: CONTRACEPTION
     Dosage: 20 MCG/24HR, CONT
     Route: 015
     Dates: start: 20110906, end: 20110909

REACTIONS (6)
  - POST PROCEDURAL DISCOMFORT [None]
  - MOOD SWINGS [None]
  - FEELING OF DESPAIR [None]
  - DEPRESSION [None]
  - CRYING [None]
  - ACTIVITIES OF DAILY LIVING IMPAIRED [None]
